FAERS Safety Report 15328406 (Version 2)
Quarter: 2020Q3

REPORT INFORMATION
  Report Type: Report from Study
  Country: IT (occurrence: IT)
  Receive Date: 20180829
  Receipt Date: 20180904
  Transmission Date: 20201105
  Serious: Yes (Other)
  Sender: FDA-Public Use
  Company Number: IT-ROCHE-2175959

PATIENT
  Age: 46 Year
  Sex: Female
  Weight: 60 kg

DRUGS (4)
  1. ALECTINIB. [Suspect]
     Active Substance: ALECTINIB
     Indication: NON-SMALL CELL LUNG CANCER
     Route: 048
     Dates: start: 20180320
  2. PURSENNID [Concomitant]
     Indication: PROPHYLAXIS
     Route: 048
  3. TONACAL D3 [Concomitant]
     Indication: PROPHYLAXIS
     Route: 048
  4. DIBASE [Concomitant]
     Active Substance: CHOLECALCIFEROL
     Indication: PROPHYLAXIS
     Route: 048

REACTIONS (1)
  - Neutropenia [Recovered/Resolved]

NARRATIVE: CASE EVENT DATE: 20180731
